FAERS Safety Report 7574442-X (Version None)
Quarter: 2011Q2

REPORT INFORMATION
  Report Type: 
  Country: None (occurrence: None)
  Receive Date: 20110627
  Receipt Date: 20110106
  Transmission Date: 20111010
  Serious: Yes (Hospitalization, Other)
  Sender: FDA-Public Use
  Company Number: US-BAYER-201035881NA

PATIENT
  Age: 31 Year
  Sex: Female
  Weight: 117.1 kg

DRUGS (7)
  1. ADVAIR DISKUS 100/50 [Concomitant]
     Dosage: UNK
  2. PREDNISONE [Concomitant]
     Dosage: UNK UNK, OW
  3. VENTOLIN HFA [Concomitant]
     Dosage: UNK
  4. PROPRANOLOL [Concomitant]
  5. YASMIN [Suspect]
     Indication: ORAL CONTRACEPTION
  6. ALBUTEROL SULFATE AUTOHALER [Concomitant]
     Dosage: UNK
     Dates: start: 20040901
  7. YASMIN [Suspect]
     Indication: MENSTRUATION IRREGULAR
     Dosage: UNK
     Dates: start: 20040301, end: 20040401

REACTIONS (9)
  - HYPOAESTHESIA [None]
  - PALPITATIONS [None]
  - COUGH [None]
  - DIZZINESS [None]
  - NAUSEA [None]
  - DYSPNOEA [None]
  - ASTHMA [None]
  - PULMONARY EMBOLISM [None]
  - CHEST DISCOMFORT [None]
